FAERS Safety Report 23583937 (Version 1)
Quarter: 2024Q1

REPORT INFORMATION
  Report Type: Spontaneous
  Country: DE (occurrence: DE)
  Receive Date: 20240301
  Receipt Date: 20240301
  Transmission Date: 20240410
  Serious: Yes (Death)
  Sender: FDA-Public Use
  Company Number: DE-JNJFOC-20240142363

PATIENT
  Sex: Male
  Weight: 94 kg

DRUGS (3)
  1. CYCLOPHOSPHAMIDE [Suspect]
     Active Substance: CYCLOPHOSPHAMIDE
     Indication: Plasma cell myeloma
     Dosage: LAST ADMINISTRATION BEFORE SAE: 05-JUL-202230 TAKE THERAPY: 04-AUG-2022
     Route: 042
     Dates: start: 20220705
  2. DEXAMETHASONE [Suspect]
     Active Substance: DEXAMETHASONE
     Indication: Plasma cell myeloma
     Dosage: LAST ADMINISTRATION BEFORE SAE: 05-JUL-202230 TAKE THERAPY: 04-AUG-2022
     Route: 048
     Dates: start: 20220705
  3. VELCADE [Suspect]
     Active Substance: BORTEZOMIB
     Indication: Plasma cell myeloma
     Dosage: LAST ADMINISTRATION BEFORE SAE: 05-JUL-202230 DAYS AFTER THERAPY: 04-AUG-2022
     Route: 058
     Dates: start: 20220705

REACTIONS (2)
  - Pancytopenia [Fatal]
  - Escherichia sepsis [Fatal]

NARRATIVE: CASE EVENT DATE: 20220803
